FAERS Safety Report 8091630-7 (Version None)
Quarter: 2012Q1

REPORT INFORMATION
  Report Type: 
  Country: None (occurrence: None)
  Receive Date: 20120125
  Receipt Date: 20120110
  Transmission Date: 20120608
  Serious: Yes (Other)
  Sender: FDA-Public Use
  Company Number: US-1189124

PATIENT
  Age: 69 Year
  Sex: Male
  Weight: 89.3586 kg

DRUGS (7)
  1. POVIDONE IODINE [Concomitant]
  2. NEVANAC [Suspect]
     Indication: CATARACT OPERATION
     Dosage: (OPHTHALMIC)
     Route: 047
  3. PREDNISOLONE ACETATE [Suspect]
     Indication: CATARACT OPERATION
     Dosage: (OPHTHALMIC)
     Route: 047
  4. BSS [Suspect]
     Indication: CATARACT OPERATION
     Dosage: (INTRAOCULAR), (INTRAOCULAR)
     Route: 031
     Dates: start: 20111115, end: 20111115
  5. VIGAMOX [Suspect]
     Indication: CATARACT OPERATION
     Dosage: (OPHTHALMIC)
     Route: 047
  6. TETRACAINE POLYGYL STERILE OPHTHALMIC SOLUTION [Suspect]
     Dosage: (OPHTHALMIC)
     Route: 047
     Dates: start: 20111115, end: 20111115
  7. DEXAMETHASONE [Concomitant]

REACTIONS (1)
  - TOXIC ANTERIOR SEGMENT SYNDROME [None]
